FAERS Safety Report 14565376 (Version 2)
Quarter: 2018Q2

REPORT INFORMATION
  Report Type: Spontaneous
  Country: US (occurrence: US)
  Receive Date: 20180223
  Receipt Date: 20180624
  Transmission Date: 20180711
  Serious: Yes (Hospitalization, Other)
  Sender: FDA-Public Use
  Company Number: US-BEH-2018088093

PATIENT
  Age: 14 Year
  Sex: Male
  Weight: 44.67 kg

DRUGS (27)
  1. HIZENTRA [Suspect]
     Active Substance: HUMAN IMMUNOGLOBULIN G
     Dosage: UNK
     Route: 058
  2. HIZENTRA [Suspect]
     Active Substance: HUMAN IMMUNOGLOBULIN G
     Dosage: UNK
     Route: 058
  3. DIPHENHYDRAMINE, COMBINATIONS [Concomitant]
  4. OMEPRAZOLE. [Concomitant]
     Active Substance: OMEPRAZOLE
  5. RISPERIDONE. [Concomitant]
     Active Substance: RISPERIDONE
  6. HIZENTRA [Suspect]
     Active Substance: HUMAN IMMUNOGLOBULIN G
     Dosage: UNK
     Route: 058
  7. HIZENTRA [Suspect]
     Active Substance: HUMAN IMMUNOGLOBULIN G
     Dosage: UNK
     Route: 058
  8. SINGULAIR [Concomitant]
     Active Substance: MONTELUKAST SODIUM
  9. NASONEX [Concomitant]
     Active Substance: MOMETASONE FUROATE
  10. GABAPENTIN. [Concomitant]
     Active Substance: GABAPENTIN
  11. BUDESONIDE. [Concomitant]
     Active Substance: BUDESONIDE
  12. SENNA                              /00142201/ [Concomitant]
     Active Substance: SENNA LEAF
  13. FLUOXETINE [Concomitant]
     Active Substance: FLUOXETINE HYDROCHLORIDE
  14. ACETAMINOPHEN. [Concomitant]
     Active Substance: ACETAMINOPHEN
  15. EPINEPHRINE. [Concomitant]
     Active Substance: EPINEPHRINE
  16. PLAVIX [Concomitant]
     Active Substance: CLOPIDOGREL BISULFATE
  17. ADDERALL [Concomitant]
     Active Substance: AMPHETAMINE ASPARTATE\AMPHETAMINE SULFATE\DEXTROAMPHETAMINE SACCHARATE\DEXTROAMPHETAMINE SULFATE
  18. ADVAIR HFA [Concomitant]
     Active Substance: FLUTICASONE PROPIONATE\SALMETEROL XINAFOATE
  19. IBUPROFEN. [Concomitant]
     Active Substance: IBUPROFEN
  20. LIDOCAINE/PRILOCAINE [Concomitant]
     Active Substance: LIDOCAINE\PRILOCAINE
  21. ALBUTEROL                          /00139501/ [Concomitant]
     Active Substance: ALBUTEROL
  22. HIZENTRA [Suspect]
     Active Substance: HUMAN IMMUNOGLOBULIN G
     Indication: HYPOGAMMAGLOBULINAEMIA
     Dosage: 5 G, QW
     Route: 058
     Dates: start: 20170907
  23. MIRALAX [Concomitant]
     Active Substance: POLYETHYLENE GLYCOL 3350
  24. METOPROLOL SUCCINATE. [Concomitant]
     Active Substance: METOPROLOL SUCCINATE
  25. LOVENOX [Concomitant]
     Active Substance: ENOXAPARIN SODIUM
  26. CLONIDINE. [Concomitant]
     Active Substance: CLONIDINE
  27. IRON [Concomitant]
     Active Substance: IRON

REACTIONS (2)
  - Venous thrombosis [Unknown]
  - Stent placement [Unknown]

NARRATIVE: CASE EVENT DATE: 20180126
